FAERS Safety Report 13738984 (Version 1)
Quarter: 2017Q3

REPORT INFORMATION
  Report Type: Report from Study
  Country: US (occurrence: US)
  Receive Date: 20170710
  Receipt Date: 20170710
  Transmission Date: 20171127
  Serious: No
  Sender: FDA-Public Use
  Company Number: US-SAOL THERAPEUTICS-2017SAO00712

PATIENT
  Age: 52 Year
  Sex: Female

DRUGS (28)
  1. DILAUDID [Suspect]
     Active Substance: HYDROMORPHONE HYDROCHLORIDE
     Dosage: 1.498 MG, \DAY
     Route: 037
     Dates: start: 20170324
  2. BUPIVACAINE. [Suspect]
     Active Substance: BUPIVACAINE
     Dosage: 16.983 MG, \DAY
     Route: 037
     Dates: start: 20170321, end: 20170324
  3. CLONIDINE. [Suspect]
     Active Substance: CLONIDINE
     Dosage: 93.33 ?G, \DAY
     Route: 037
     Dates: start: 20170210, end: 20170321
  4. COMPOUNDED BACLOFEN [Suspect]
     Active Substance: BACLOFEN
     Dosage: 99.88 ?G, \DAY
     Route: 037
     Dates: start: 20170324
  5. DILAUDID [Suspect]
     Active Substance: HYDROMORPHONE HYDROCHLORIDE
     Dosage: 1.4 MG, \DAY
     Route: 037
     Dates: start: 20170210, end: 20170321
  6. BUPIVACAINE. [Suspect]
     Active Substance: BUPIVACAINE
     Dosage: 19.64 MG, \DAY
     Route: 037
     Dates: start: 20170210, end: 20170321
  7. COMPOUNDED BACLOFEN [Suspect]
     Active Substance: BACLOFEN
     Dosage: 130.95 ?G, \DAY
     Route: 037
     Dates: start: 20170210, end: 20170321
  8. CLONIDINE. [Suspect]
     Active Substance: CLONIDINE
     Dosage: 113.22 ?G, \DAY
     Route: 037
     Dates: start: 20170321, end: 20170324
  9. COMPOUNDED BACLOFEN [Suspect]
     Active Substance: BACLOFEN
     Dosage: 150.19 ?G, \DAY
     Route: 037
     Dates: start: 20170324
  10. BUPIVACAINE. [Suspect]
     Active Substance: BUPIVACAINE
     Dosage: 22.528 MG, \DAY
     Route: 037
     Dates: start: 20170324
  11. CLONIDINE. [Suspect]
     Active Substance: CLONIDINE
     Dosage: 150.19 ?G, \DAY
     Route: 037
     Dates: start: 20170324
  12. BUPIVACAINE. [Suspect]
     Active Substance: BUPIVACAINE
     Dosage: 14.218 MG, \DAY
     Route: 037
     Dates: start: 20170209, end: 20170210
  13. COMPOUNDED BACLOFEN [Suspect]
     Active Substance: BACLOFEN
     Dosage: 113.22 ?G, \DAY
     Route: 037
     Dates: start: 20170321, end: 20170324
  14. COMPOUNDED BACLOFEN [Suspect]
     Active Substance: BACLOFEN
     Dosage: 151.28 ?G, \DAY
     Route: 037
     Dates: start: 20170321, end: 20170324
  15. DILAUDID [Suspect]
     Active Substance: HYDROMORPHONE HYDROCHLORIDE
     Dosage: 1.964 MG, \DAY
     Route: 037
     Dates: start: 20170210, end: 20170321
  16. DILAUDID [Suspect]
     Active Substance: HYDROMORPHONE HYDROCHLORIDE
     Dosage: 2.269 MG, \DAY
     Route: 037
     Dates: start: 20170321, end: 20170324
  17. BUPIVACAINE. [Suspect]
     Active Substance: BUPIVACAINE
     Dosage: 22.693 MG, \DAY
     Route: 037
     Dates: start: 20170321, end: 20170324
  18. BUPIVACAINE. [Suspect]
     Active Substance: BUPIVACAINE
     Dosage: 14.982 MG, \DAY
     Route: 037
     Dates: start: 20170324
  19. DILAUDID [Suspect]
     Active Substance: HYDROMORPHONE HYDROCHLORIDE
     Dosage: 1.502 MG, \DAY
     Route: 037
     Dates: start: 20170209, end: 20170210
  20. BUPIVACAINE. [Suspect]
     Active Substance: BUPIVACAINE
     Dosage: 21.340 MG, \DAY
     Route: 037
     Dates: start: 20170209, end: 20170210
  21. DILAUDID [Suspect]
     Active Substance: HYDROMORPHONE HYDROCHLORIDE
     Dosage: 1.698 MG, \DAY
     Route: 037
     Dates: start: 20170321, end: 20170324
  22. CLONIDINE. [Suspect]
     Active Substance: CLONIDINE
     Dosage: 130.95 ?G, \DAY
     Route: 037
     Dates: start: 20170210, end: 20170321
  23. COMPOUNDED BACLOFEN [Suspect]
     Active Substance: BACLOFEN
     Dosage: 93.33 ?G, \DAY
     Route: 037
     Dates: start: 20170210, end: 20170321
  24. DILAUDID [Suspect]
     Active Substance: HYDROMORPHONE HYDROCHLORIDE
     Dosage: 2.252 MG, \DAY
     Route: 037
     Dates: start: 20170324
  25. BUPIVACAINE. [Suspect]
     Active Substance: BUPIVACAINE
     Dosage: 14 MG, \DAY
     Route: 037
     Dates: start: 20170210, end: 20170321
  26. CLONIDINE. [Suspect]
     Active Substance: CLONIDINE
     Dosage: 151.28 ?G, \DAY
     Route: 037
     Dates: start: 20170321, end: 20170324
  27. CLONIDINE. [Suspect]
     Active Substance: CLONIDINE
     Dosage: 99.88 ?G, \DAY
     Route: 037
     Dates: start: 20170324
  28. DILAUDID [Suspect]
     Active Substance: HYDROMORPHONE HYDROCHLORIDE
     Dosage: 1.001 MG, \DAY
     Route: 037
     Dates: start: 20170209, end: 20170210

REACTIONS (2)
  - Asthenia [Recovered/Resolved]
  - Dizziness [Recovered/Resolved]

NARRATIVE: CASE EVENT DATE: 20170324
